FAERS Safety Report 6717999-0 (Version None)
Quarter: 2010Q2

REPORT INFORMATION
  Report Type: 
  Country: None (occurrence: None)
  Receive Date: 20100510
  Receipt Date: 20100506
  Transmission Date: 20101027
  Serious: Yes (Death, Other)
  Sender: FDA-Public Use
  Company Number: PHHY2010TW29338

PATIENT
  Age: 51 Year
  Sex: Male

DRUGS (2)
  1. CYCLOSPORINE [Suspect]
     Indication: HEART TRANSPLANT
     Dosage: UNK
     Dates: start: 19870716
  2. STEROIDS NOS [Suspect]
     Indication: HEART TRANSPLANT
     Dosage: UNK
     Dates: start: 19870716

REACTIONS (3)
  - HEART TRANSPLANT REJECTION [None]
  - LUNG INFECTION PSEUDOMONAL [None]
  - PSEUDOMONAL SEPSIS [None]
